FAERS Safety Report 12950131 (Version 1)
Quarter: 2016Q4

REPORT INFORMATION
  Report Type: Spontaneous
  Country: US (occurrence: US)
  Receive Date: 20161117
  Receipt Date: 20161117
  Transmission Date: 20170207
  Serious: No
  Sender: FDA-Public Use
  Company Number: US-LEO PHARMA-244791

PATIENT
  Age: 65 Year
  Sex: Female

DRUGS (2)
  1. VITAMINS [Concomitant]
     Active Substance: VITAMINS
     Indication: PRODUCT USED FOR UNKNOWN INDICATION
  2. PICATO [Suspect]
     Active Substance: INGENOL MEBUTATE
     Indication: ACTINIC KERATOSIS
     Route: 061
     Dates: start: 20161101, end: 20161103

REACTIONS (8)
  - Application site discharge [Recovered/Resolved]
  - Application site pruritus [Not Recovered/Not Resolved]
  - Application site erythema [Not Recovered/Not Resolved]
  - Headache [Recovered/Resolved]
  - Application site swelling [Recovered/Resolved]
  - Application site vesicles [Recovered/Resolved]
  - Eye swelling [Recovered/Resolved]
  - Application site pain [Recovered/Resolved]
